FAERS Safety Report 8286303 (Version 3)
Quarter: 2014Q2

REPORT INFORMATION
  Report Type: Spontaneous
  Country: US (occurrence: US)
  Receive Date: 20111213
  Receipt Date: 20140530
  Transmission Date: 20141212
  Serious: Yes (Hospitalization, Disabling)
  Sender: FDA-Public Use
  Company Number: US-GLAXOSMITHKLINE-A0956917A

PATIENT
  Age: 49 Year
  Sex: Male

DRUGS (4)
  1. LAMICTAL [Suspect]
     Indication: EPILEPSY
     Dosage: 100MG UNKNOWN
     Route: 065
     Dates: start: 20110302
  2. LAMICTAL [Suspect]
     Indication: EPILEPSY
     Dosage: 200MG TWICE PER DAY
     Route: 048
     Dates: start: 201106
  3. DILANTIN [Concomitant]
     Dosage: 100MG THREE TIMES PER DAY
  4. CLONAZEPAM [Concomitant]

REACTIONS (9)
  - Convulsion [Recovered/Resolved]
  - Aura [Unknown]
  - Autoscopy [Unknown]
  - Muscular weakness [Unknown]
  - Pain [Unknown]
  - Mouth injury [Unknown]
  - Drug prescribing error [Unknown]
  - Myocardial infarction [Unknown]
  - Epilepsy [Unknown]
